FAERS Safety Report 10351008 (Version 1)
Quarter: 2014Q3

REPORT INFORMATION
  Report Type: Spontaneous
  Country: US (occurrence: US)
  Receive Date: 20140730
  Receipt Date: 20140730
  Transmission Date: 20150326
  Serious: No
  Sender: FDA-Public Use
  Company Number: US-PFIZER INC-2014211240

PATIENT
  Age: 26 Year
  Sex: Male
  Weight: 60.32 kg

DRUGS (5)
  1. ALPRAZOLAM. [Suspect]
     Active Substance: ALPRAZOLAM
     Indication: ANXIETY
     Dosage: 0.5 MG, 5X/DAY
     Route: 048
     Dates: start: 2008, end: 201407
  2. AZITHROMYCIN [Interacting]
     Active Substance: AZITHROMYCIN ANHYDROUS
     Dosage: 250 MG, UNK
     Route: 048
     Dates: end: 20140721
  3. ALPRAZOLAM. [Interacting]
     Active Substance: ALPRAZOLAM
     Dosage: 1 MG (BY TAKING TWO TABLETS OF 0.5 MG TOGETHER), 4X/DAY
     Route: 048
     Dates: start: 201407
  4. AZITHROMYCIN [Interacting]
     Active Substance: AZITHROMYCIN ANHYDROUS
     Indication: SINUSITIS
     Dosage: 500 MG, UNK
     Route: 048
     Dates: start: 20140717
  5. ACIPHEX [Concomitant]
     Active Substance: RABEPRAZOLE SODIUM
     Dosage: 20 MG, UNK

REACTIONS (7)
  - Bronchospasm [Unknown]
  - Depression [Unknown]
  - Drug interaction [Unknown]
  - Weight decreased [Unknown]
  - Anxiety [Unknown]
  - Sinusitis [Recovering/Resolving]
  - Drug ineffective [Unknown]

NARRATIVE: CASE EVENT DATE: 2014
